FAERS Safety Report 12492773 (Version 1)
Quarter: 2016Q2

REPORT INFORMATION
  Report Type: Spontaneous
  Country: None (occurrence: None)
  Receive Date: 20160622
  Receipt Date: 20160622
  Transmission Date: 20160815
  Serious: Yes (Hospitalization)
  Sender: FDA-Public Use
  Company Number: None

PATIENT
  Age: 80 Year
  Sex: Female

DRUGS (1)
  1. CYCLOPHOSPHAMIDE 50 MG CAP ROXANE [Suspect]
     Active Substance: CYCLOPHOSPHAMIDE
     Indication: PRODUCT USED FOR UNKNOWN INDICATION
     Dosage: (PT IS SEEN BY MD EVERY 3 DAYS AND PT FOLLOWS MD INSTRUCTIONS ONTAKING MED)
     Route: 048
     Dates: start: 20150505, end: 20160527

REACTIONS (6)
  - Erythema [None]
  - Feeling abnormal [None]
  - Therapy change [None]
  - Chest pain [None]
  - Joint swelling [None]
  - Therapy cessation [None]

NARRATIVE: CASE EVENT DATE: 20160601
